FAERS Safety Report 7363479-1 (Version None)
Quarter: 2011Q1

REPORT INFORMATION
  Report Type: 
  Country: None (occurrence: None)
  Receive Date: 20110321
  Receipt Date: 20110307
  Transmission Date: 20110831
  Serious: Yes (Other)
  Sender: FDA-Public Use
  Company Number: US-RANBAXY-2010RR-40581

PATIENT
  Sex: Female

DRUGS (14)
  1. COZAAR [Concomitant]
  2. LEVAQUIN [Suspect]
     Indication: SINUSITIS
     Dosage: UNK
     Route: 048
     Dates: start: 20060801
  3. METHYLPREDNISOLONE [Suspect]
     Indication: PRODUCT USED FOR UNKNOWN INDICATION
     Route: 065
  4. DARVOCET [Concomitant]
  5. SYNTHROID [Concomitant]
  6. LEVAQUIN [Suspect]
     Indication: RESPIRATORY TRACT INFECTION
  7. SINGULAIR [Concomitant]
  8. LEVAQUIN [Suspect]
     Indication: BRONCHITIS
  9. PREDNISOLONE [Suspect]
     Indication: RHINITIS ALLERGIC
     Dosage: 20 MG, QD
     Route: 065
  10. REGLAN [Concomitant]
  11. ZELNORM [Concomitant]
  12. CIPROFLOXACIN [Suspect]
     Indication: INFECTION
  13. PREDNISOLONE [Suspect]
     Dosage: 50 MG, QD
     Route: 048
  14. ZEITA [Concomitant]

REACTIONS (3)
  - TENDONITIS [None]
  - PLANTAR FASCIITIS [None]
  - EPICONDYLITIS [None]
